FAERS Safety Report 7038344-X (Version None)
Quarter: 2010Q4

REPORT INFORMATION
  Report Type: 
  Country: None (occurrence: None)
  Receive Date: 20101011
  Receipt Date: 20091104
  Transmission Date: 20110411
  Serious: No
  Sender: FDA-Public Use
  Company Number: US-PFIZER INC-2009267428

PATIENT
  Sex: Male
  Weight: 111 kg

DRUGS (7)
  1. GABAPENTIN [Suspect]
     Indication: SCIATICA
     Dosage: 600 MG, 1X/DAY
     Route: 048
     Dates: start: 20090812
  2. GABAPENTIN [Suspect]
  3. ALCOHOL [Suspect]
     Dosage: UNK
     Dates: start: 20090822
  4. LOTREL [Concomitant]
     Indication: HYPERTENSION
     Dosage: UNK
  5. LITHIUM [Concomitant]
     Indication: BIPOLAR DISORDER
     Dosage: 450 MG, 1X/DAY
  6. XANAX [Concomitant]
     Dosage: 0.5 MG, 1X/DAY
  7. EXCEDRIN P.M. [Concomitant]
     Dosage: UNK

REACTIONS (9)
  - ABDOMINAL PAIN UPPER [None]
  - ASTHENIA [None]
  - DIARRHOEA [None]
  - DIZZINESS [None]
  - FATIGUE [None]
  - GASTROINTESTINAL PAIN [None]
  - MOVEMENT DISORDER [None]
  - SPEECH DISORDER [None]
  - WEIGHT INCREASED [None]
